FAERS Safety Report 10071890 (Version 2)
Quarter: 2014Q2

REPORT INFORMATION
  Report Type: Spontaneous
  Country: US (occurrence: US)
  Receive Date: 20140411
  Receipt Date: 20140512
  Transmission Date: 20141212
  Serious: No
  Sender: FDA-Public Use
  Company Number: US-B.I. PHARMACEUTICALS,INC./RIDGEFIELD-2014-BI-14242BP

PATIENT
  Sex: Female
  Weight: 54 kg

DRUGS (3)
  1. SPIRIVA [Suspect]
     Indication: PULMONARY RADIATION INJURY
     Dosage: 18 MCG
     Route: 055
     Dates: start: 2009
  2. XOPENEX [Concomitant]
     Indication: CHRONIC OBSTRUCTIVE PULMONARY DISEASE
     Dosage: 5 ML
     Route: 055
  3. RADIATION TREATMENTS [Concomitant]
     Route: 065

REACTIONS (4)
  - Productive cough [Not Recovered/Not Resolved]
  - Product taste abnormal [Recovered/Resolved]
  - Blood pressure decreased [Not Recovered/Not Resolved]
  - Off label use [Unknown]
